FAERS Safety Report 24000299 (Version 3)
Quarter: 2024Q3

REPORT INFORMATION
  Report Type: Spontaneous
  Country: US (occurrence: US)
  Receive Date: 20240621
  Receipt Date: 20240805
  Transmission Date: 20241017
  Serious: No
  Sender: PFIZER
  Company Number: US-PFIZER INC-202400196198

PATIENT
  Age: 16 Year
  Sex: Male

DRUGS (3)
  1. GENOTROPIN [Suspect]
     Active Substance: SOMATROPIN
     Dosage: 2 MG, DAILY
  2. GENOTROPIN [Suspect]
     Active Substance: SOMATROPIN
     Dosage: ALTERNATING WITH 2.6 MG
  3. GENOTROPIN [Suspect]
     Active Substance: SOMATROPIN
     Dosage: ALTERNATING WITH 2.4 MG

REACTIONS (3)
  - Device breakage [Unknown]
  - Device occlusion [Unknown]
  - Drug dose omission by device [Unknown]
